FAERS Safety Report 11088067 (Version 1)
Quarter: 2015Q2

REPORT INFORMATION
  Report Type: Spontaneous
  Country: RU (occurrence: None)
  Receive Date: 20150430
  Receipt Date: 20150430
  Transmission Date: 20150821
  Serious: Yes (Other)
  Sender: FDA-Public Use
  Company Number: RU2015GSKI019195

PATIENT
  Sex: Male

DRUGS (3)
  1. KIVEXA [Suspect]
     Active Substance: ABACAVIR SULFATE\LAMIVUDINE
     Indication: HIV INFECTION
     Dates: start: 201412
  2. PREZISTA [Suspect]
     Active Substance: DARUNAVIR ETHANOLATE
     Indication: HIV INFECTION
     Dates: start: 201412
  3. NORVIR [Suspect]
     Active Substance: RITONAVIR
     Indication: HIV INFECTION
     Dates: start: 201412

REACTIONS (7)
  - Nausea [None]
  - Respiratory tract infection viral [None]
  - Pneumocystis jirovecii pneumonia [None]
  - Diarrhoea [None]
  - Asthenia [None]
  - Pharyngeal disorder [None]
  - Pyrexia [None]

NARRATIVE: CASE EVENT DATE: 201503
